FAERS Safety Report 10150398 (Version 4)
Quarter: 2014Q2

REPORT INFORMATION
  Report Type: Report from Study
  Country: JP (occurrence: JP)
  Receive Date: 20140502
  Receipt Date: 20140521
  Transmission Date: 20141212
  Serious: Yes (Hospitalization, Other)
  Sender: FDA-Public Use
  Company Number: JP-TAKEDA-TCI2012A06465

PATIENT
  Age: 84 Year
  Sex: Female
  Weight: 38 kg

DRUGS (19)
  1. ALOGLIPTIN [Suspect]
     Indication: TYPE 2 DIABETES MELLITUS
     Dosage: 25 MG, QD
     Route: 048
     Dates: start: 20111008, end: 20130429
  2. ACTOS [Concomitant]
     Indication: TYPE 2 DIABETES MELLITUS
     Dosage: 15 MG, 1 DAYS
     Route: 048
     Dates: start: 20130326, end: 20130429
  3. AMARYL [Concomitant]
     Indication: TYPE 2 DIABETES MELLITUS
     Dosage: 0.5 MG, 1 DAYS
     Route: 048
     Dates: start: 20111111, end: 20120119
  4. AMARYL [Concomitant]
     Dosage: 1 MG, 1 DAYS
     Route: 048
     Dates: start: 20120120, end: 20120223
  5. AMARYL [Concomitant]
     Dosage: 1.5 MG, 1 DAYS
     Route: 048
     Dates: start: 20120224, end: 20120531
  6. AMARYL [Concomitant]
     Dosage: 2 MG, 1DAYS
     Route: 048
     Dates: start: 20120601, end: 20120809
  7. AMARYL [Concomitant]
     Dosage: 3 MG, 1 DAYS
     Route: 048
     Dates: start: 20120810, end: 20130429
  8. ARICEPT D [Concomitant]
     Indication: DEMENTIA ALZHEIMER^S TYPE
     Dosage: 5 MG,1 DAYS
     Route: 048
     Dates: start: 20111008, end: 20130429
  9. THYRADIN-S [Concomitant]
     Indication: AUTOIMMUNE THYROIDITIS
     Dosage: 25 ?G,1 DAYS
     Route: 048
     Dates: end: 20130429
  10. MAGMITT [Concomitant]
     Dosage: UNK
     Route: 048
  11. MERISLON [Concomitant]
     Indication: DIZZINESS
     Dosage: 18 MG, 1 DAYS
     Route: 048
     Dates: start: 20111008, end: 20130429
  12. AMOBAN [Concomitant]
     Indication: INSOMNIA
     Dosage: 7.5 MG, 1 DAYS
     Route: 048
     Dates: end: 20130428
  13. CEROCRAL [Concomitant]
     Indication: CEREBRAL INFARCTION
     Dosage: 60 MG,1 DAYS
     Route: 048
     Dates: end: 20130429
  14. MUCOSTA [Concomitant]
     Indication: GASTRITIS
     Dosage: 300 MG, 1 DAYS
     Route: 048
     Dates: start: 20111008, end: 20130429
  15. VESICARE OD [Concomitant]
     Indication: HYPERTONIC BLADDER
     Dosage: 5 MG,1 DAYS
     Route: 048
     Dates: start: 20111008, end: 20130429
  16. MUCODYNE [Concomitant]
     Indication: BRONCHITIS CHRONIC
     Dosage: 3 G, 1 DAYS
     Route: 048
     Dates: end: 20130429
  17. YODEL S [Concomitant]
     Dosage: UNK
     Route: 048
  18. CELECOX [Concomitant]
     Dosage: UNK
     Route: 048
  19. GASTER D [Concomitant]
     Dosage: UNK
     Route: 048

REACTIONS (3)
  - Cerebral infarction [Unknown]
  - Cervicobrachial syndrome [Recovering/Resolving]
  - Condition aggravated [Recovering/Resolving]
